FAERS Safety Report 4279239-4 (Version None)
Quarter: 2004Q1

REPORT INFORMATION
  Report Type: 
  Country: None (occurrence: None)
  Receive Date: 20040122
  Receipt Date: 20040116
  Transmission Date: 20041129
  Serious: Yes (Life-Threatening, Hospitalization, Other)
  Sender: FDA-Public Use
  Company Number: 2004193504CA

PATIENT
  Age: 38 Year
  Sex: Female

DRUGS (1)
  1. DEPO-PROVERA [Suspect]
     Indication: ENDOMETRIOSIS
     Dosage: 1ST INJECTION ,INTRAMUSCULAR
     Route: 030
     Dates: start: 20031114, end: 20031114

REACTIONS (5)
  - ACNE [None]
  - DEPRESSION [None]
  - SEBORRHOEA [None]
  - SKIN DISCOLOURATION [None]
  - SUICIDE ATTEMPT [None]
